FAERS Safety Report 9313598 (Version 1)
Quarter: 2013Q2

REPORT INFORMATION
  Report Type: Spontaneous
  Country: US (occurrence: US)
  Receive Date: 20130528
  Receipt Date: 20130528
  Transmission Date: 20140414
  Serious: No
  Sender: FDA-Public Use
  Company Number: US-TEVA-407230USA

PATIENT
  Age: 39 Year
  Sex: Male

DRUGS (3)
  1. QNASL [Suspect]
     Dates: start: 201301, end: 20130506
  2. SINGULAR [Concomitant]
  3. CLARITIN [Concomitant]

REACTIONS (3)
  - Headache [Recovered/Resolved]
  - Nasal congestion [Recovered/Resolved]
  - Burning sensation [Recovered/Resolved]
